FAERS Safety Report 25615486 (Version 1)
Quarter: 2025Q3

REPORT INFORMATION
  Report Type: Report from Study
  Country: GB (occurrence: None)
  Receive Date: 20250729
  Receipt Date: 20250729
  Transmission Date: 20251020
  Serious: Yes (Other)
  Sender: Alvotech
  Company Number: GB-ALVOTECHPMS-2025-ALVOTECHPMS-004696

PATIENT
  Age: 52 Year
  Sex: Male

DRUGS (1)
  1. USTEKINUMAB [Suspect]
     Active Substance: USTEKINUMAB
     Indication: Psoriasis
     Dosage: 1 X 90 MG / 4 WEEK(S)
     Route: 058

REACTIONS (2)
  - Cerebrovascular accident [Unknown]
  - Disturbance in attention [Unknown]
